FAERS Safety Report 21403111 (Version 5)
Quarter: 2023Q1

REPORT INFORMATION
  Report Type: Spontaneous
  Country: US (occurrence: US)
  Receive Date: 20221003
  Receipt Date: 20230227
  Transmission Date: 20230418
  Serious: Yes (Hospitalization, Other)
  Sender: FDA-Public Use
  Company Number: US-GLAXOSMITHKLINE-US2022AMR092404

PATIENT

DRUGS (4)
  1. ZEJULA [Suspect]
     Active Substance: NIRAPARIB
     Indication: Ovarian cancer
     Dosage: 200 MG, QD
     Route: 048
     Dates: start: 202205
  2. ZEJULA [Suspect]
     Active Substance: NIRAPARIB
     Dosage: 200 MG, QD (QPM)
     Dates: start: 20220528
  3. ZEJULA [Suspect]
     Active Substance: NIRAPARIB
     Dosage: 200 MG, QD (QPM)
  4. ZEJULA [Suspect]
     Active Substance: NIRAPARIB
     Dosage: 200 MG, QD
     Dates: start: 202206

REACTIONS (21)
  - Abdominal pain [Recovering/Resolving]
  - Nodule [Recovering/Resolving]
  - Pancreatitis [Unknown]
  - Recurrent cancer [Not Recovered/Not Resolved]
  - Nausea [Not Recovered/Not Resolved]
  - Arthralgia [Unknown]
  - Fatigue [Recovering/Resolving]
  - Renal function test abnormal [Unknown]
  - Arthritis [Unknown]
  - Exostosis [Unknown]
  - Feeling abnormal [Recovering/Resolving]
  - Decreased appetite [Unknown]
  - Blood pressure increased [Unknown]
  - Contusion [Unknown]
  - Vasodilatation [Unknown]
  - Flank pain [Unknown]
  - Pelvic pain [Not Recovered/Not Resolved]
  - Tumour marker increased [Unknown]
  - Product dose omission in error [Unknown]
  - Product dose omission issue [Recovered/Resolved]
  - Drug ineffective [Unknown]

NARRATIVE: CASE EVENT DATE: 20221001
